FAERS Safety Report 10642466 (Version 1)
Quarter: 2014Q4

REPORT INFORMATION
  Report Type: Spontaneous
  Country: US (occurrence: None)
  Receive Date: 20141208
  Receipt Date: 20141208
  Transmission Date: 20150529
  Serious: Yes (Disabling)
  Sender: FDA-Public Use
  Company Number: None

PATIENT
  Age: 25 Year
  Sex: Male
  Weight: 113.4 kg

DRUGS (6)
  1. ADDERALL [Suspect]
     Active Substance: AMPHETAMINE ASPARTATE\AMPHETAMINE SULFATE\DEXTROAMPHETAMINE SACCHARATE\DEXTROAMPHETAMINE SULFATE
     Indication: ATTENTION DEFICIT/HYPERACTIVITY DISORDER
     Dosage: 1 PILL, TWICE DAILY, TAKEN BY MOUTH
     Route: 048
     Dates: start: 20090610, end: 20100616
  2. ADDERALL [Suspect]
     Active Substance: AMPHETAMINE ASPARTATE\AMPHETAMINE SULFATE\DEXTROAMPHETAMINE SACCHARATE\DEXTROAMPHETAMINE SULFATE
     Indication: POST-TRAUMATIC STRESS DISORDER
     Dosage: 1 PILL, TWICE DAILY, TAKEN BY MOUTH
     Route: 048
     Dates: start: 20090610, end: 20100616
  3. ADDERALL [Suspect]
     Active Substance: AMPHETAMINE ASPARTATE\AMPHETAMINE SULFATE\DEXTROAMPHETAMINE SACCHARATE\DEXTROAMPHETAMINE SULFATE
     Indication: DEPRESSION
     Dosage: 1 PILL, TWICE DAILY, TAKEN BY MOUTH
     Route: 048
     Dates: start: 20090610, end: 20100616
  4. EFFEXOR XR [Suspect]
     Active Substance: VENLAFAXINE HYDROCHLORIDE
     Indication: DEPRESSION
     Dosage: TWO PILLS (150MG), ONCE DAILY, TAKEN BY MOUTH
     Route: 048
     Dates: start: 20080801, end: 20100609
  5. EFFEXOR XR [Suspect]
     Active Substance: VENLAFAXINE HYDROCHLORIDE
     Indication: POST-TRAUMATIC STRESS DISORDER
     Dosage: TWO PILLS (150MG), ONCE DAILY, TAKEN BY MOUTH
     Route: 048
     Dates: start: 20080801, end: 20100609
  6. EFFEXOR XR [Suspect]
     Active Substance: VENLAFAXINE HYDROCHLORIDE
     Indication: ATTENTION DEFICIT/HYPERACTIVITY DISORDER
     Dosage: TWO PILLS (150MG), ONCE DAILY, TAKEN BY MOUTH
     Route: 048
     Dates: start: 20080801, end: 20100609

REACTIONS (13)
  - Cerebral disorder [None]
  - Anorgasmia [None]
  - Drug withdrawal syndrome [None]
  - Muscle tightness [None]
  - Pain [None]
  - Disorder of orbit [None]
  - Neuropathy peripheral [None]
  - Muscle contractions involuntary [None]
  - Parkinsonism [None]
  - Burning sensation [None]
  - Dystonia [None]
  - Contusion [None]
  - Nervous system disorder [None]

NARRATIVE: CASE EVENT DATE: 20100623
